FAERS Safety Report 16943528 (Version 1)
Quarter: 2019Q4

REPORT INFORMATION
  Report Type: Spontaneous
  Country: DK (occurrence: DK)
  Receive Date: 20191022
  Receipt Date: 20191022
  Transmission Date: 20200122
  Serious: Yes (Hospitalization)
  Sender: FDA-Public Use
  Company Number: DK-TEVA-2019-DK-1124135

PATIENT
  Age: 84 Year
  Sex: Female

DRUGS (11)
  1. GABAPENTIN. [Concomitant]
     Active Substance: GABAPENTIN
     Indication: PAIN
     Dosage: STRENGTH: 300 MG.
     Route: 048
     Dates: start: 20190130
  2. ALFACALCIDOL [Concomitant]
     Active Substance: ALFACALCIDOL
     Indication: CALCIUM METABOLISM DISORDER
     Dosage: STRENGTH: 0.5 MICROGRAM/ DAY
     Route: 048
     Dates: start: 20170616
  3. CITALOPRAM [Concomitant]
     Active Substance: CITALOPRAM HYDROBROMIDE
     Indication: DEPRESSION
     Dosage: STRENGTH : 20 MG.
     Route: 048
     Dates: start: 20141126
  4. FUROSEMIDE. [Concomitant]
     Active Substance: FUROSEMIDE
     Indication: HYPERTENSION
     Dosage: STRENGTH: 40 MG, 160MG/ DAY
     Route: 048
     Dates: start: 20190531
  5. PROMETAZIN ACTAVIS [Suspect]
     Active Substance: PROMETHAZINE HYDROCHLORIDE
     Indication: PRURITUS
     Dosage: STRENGTH: 25 MG/ DAY
     Route: 048
     Dates: start: 20190912, end: 20190919
  6. KALIUMKLORID [Concomitant]
     Indication: MINERAL SUPPLEMENTATION
     Dosage: STRENGTH: 750 MG, 3 MG / DAY
     Route: 048
     Dates: start: 20190607
  7. SODIUM HYDROGEN CARBONATE [Concomitant]
     Active Substance: SODIUM BICARBONATE
     Indication: ACID BASE BALANCE ABNORMAL
     Dosage: STRENGTH: 500 MG, 1 G/ DAY
     Route: 048
     Dates: start: 20170616
  8. ARANESP [Concomitant]
     Active Substance: DARBEPOETIN ALFA
     Indication: NEPHROGENIC ANAEMIA
     Dosage: STRENGTH: 20 MICROGRAM/ 2 WEEKS
     Route: 058
     Dates: start: 20190710
  9. TRAMADOL. [Concomitant]
     Active Substance: TRAMADOL
     Indication: PAIN
     Dosage: STRENGTH: 100 MG.
     Route: 048
     Dates: start: 20190710
  10. PARACETAMOL [Concomitant]
     Active Substance: ACETAMINOPHEN
     Indication: PAIN
     Dosage: STRENGTH: 500 MG, 4 G/ DAY
     Route: 048
     Dates: start: 20150507
  11. MIRTAZAPINE. [Concomitant]
     Active Substance: MIRTAZAPINE
     Indication: DEPRESSION
     Dosage: STRENGTH: 45 MG/ DAY
     Route: 048
     Dates: start: 20140512

REACTIONS (2)
  - Dizziness [Unknown]
  - Fall [Recovered/Resolved]

NARRATIVE: CASE EVENT DATE: 201909
